FAERS Safety Report 4426510-9 (Version None)
Quarter: 2004Q3

REPORT INFORMATION
  Report Type: 
  Country: None (occurrence: None)
  Receive Date: 20040812
  Receipt Date: 20040812
  Transmission Date: 20050211
  Serious: Yes (Hospitalization)
  Sender: FDA-Public Use
  Company Number: None

PATIENT
  Age: 58 Year
  Sex: Female
  Weight: 86.6 kg

DRUGS (10)
  1. DIGOXIN [Suspect]
     Indication: ATRIAL FIBRILLATION
     Dosage: 0.25 MG  DAILY   ORAL
     Route: 048
  2. ACETAMINOPHEN [Concomitant]
  3. COMBIVENT [Concomitant]
  4. FOSINPRIL [Concomitant]
  5. FUROSEMIDE [Concomitant]
  6. GUAIFENESIN [Concomitant]
  7. ISOSORBIDE DINIT [Concomitant]
  8. KCL TAB [Concomitant]
  9. RANITIDINE [Concomitant]
  10. VERAPAMIL [Concomitant]

REACTIONS (4)
  - BRADYCARDIA [None]
  - DIZZINESS [None]
  - DRUG LEVEL INCREASED [None]
  - NAUSEA [None]
